FAERS Safety Report 4746660-7 (Version None)
Quarter: 2005Q3

REPORT INFORMATION
  Report Type: 
  Country: None (occurrence: None)
  Receive Date: 20050817
  Receipt Date: 20050805
  Transmission Date: 20060218
  Serious: Yes (Hospitalization)
  Sender: FDA-Public Use
  Company Number: PHRM2005FR02237

PATIENT
  Age: 84 Year
  Sex: Female

DRUGS (10)
  1. NITRODERM [Suspect]
     Dosage: 10 MG/DAY
     Route: 062
  2. PIPRAM [Suspect]
     Dosage: 400 MG, BID
     Route: 048
     Dates: start: 20050428, end: 20050502
  3. DITROPAN [Suspect]
     Dosage: 2.5 MG, BID
     Route: 048
  4. SECTRAL [Suspect]
     Dosage: 100 MG, BID
     Route: 048
  5. ZOLOFT [Suspect]
     Dosage: 50 MG/DAY
     Route: 048
  6. RISPERDAL [Suspect]
     Dosage: 0.5 MG/DAY
     Route: 048
  7. SPASFON-LYOC [Suspect]
     Route: 048
  8. LORAZEPAM [Suspect]
     Dosage: 1.5 MG/DAY
     Route: 048
  9. ACETAMINOPHEN [Suspect]
     Dosage: 3 G/DAY
     Route: 048
  10. FRAGMIN [Suspect]
     Dosage: 2500 IU/DAY
     Route: 058

REACTIONS (5)
  - ALPHA 2 GLOBULIN INCREASED [None]
  - ELECTROPHORESIS PROTEIN ABNORMAL [None]
  - HYPOALBUMINAEMIA [None]
  - LEUKOCYTOCLASTIC VASCULITIS [None]
  - PURPURA [None]
